FAERS Safety Report 23315546 (Version 1)
Quarter: 2023Q4

REPORT INFORMATION
  Report Type: Spontaneous
  Country: US (occurrence: US)
  Receive Date: 20231219
  Receipt Date: 20231219
  Transmission Date: 20240109
  Serious: No
  Sender: FDA-Public Use
  Company Number: US-ORG100016242-2023000263

PATIENT
  Age: 49 Year
  Sex: Female

DRUGS (3)
  1. EXPAREL [Suspect]
     Active Substance: BUPIVACAINE
     Indication: Nerve block
     Dosage: 10 CC
     Route: 065
     Dates: start: 20230920, end: 20230920
  2. MARCAINE [Suspect]
     Active Substance: BUPIVACAINE HYDROCHLORIDE
     Indication: Nerve block
     Dosage: 13 CC
     Route: 065
     Dates: start: 20230920, end: 20230920
  3. ROPIVACAINE [Suspect]
     Active Substance: ROPIVACAINE
     Indication: Nerve block
     Dosage: NOT PROVIDED
     Route: 065
     Dates: start: 20230920, end: 20230920

REACTIONS (2)
  - Procedural pain [Recovering/Resolving]
  - Labelled drug-drug interaction medication error [Recovering/Resolving]

NARRATIVE: CASE EVENT DATE: 20230920
